FAERS Safety Report 7592135-X (Version None)
Quarter: 2011Q3

REPORT INFORMATION
  Report Type: 
  Country: None (occurrence: None)
  Receive Date: 20110706
  Receipt Date: 20110624
  Transmission Date: 20111222
  Serious: Yes (Hospitalization, Other)
  Sender: FDA-Public Use
  Company Number: FR-ELI_LILLY_AND_COMPANY-FR201106006905

PATIENT
  Sex: Male

DRUGS (8)
  1. GLUCOPHAGE [Concomitant]
     Dosage: 1 G, TID
     Route: 048
     Dates: end: 20101103
  2. DIAMICRON [Concomitant]
     Dosage: 120 MG, QD
     Route: 048
     Dates: end: 20101103
  3. AMLODIPINE [Concomitant]
     Dosage: 5 MG, QD
     Route: 048
  4. PRETERAX [Concomitant]
     Dosage: 1 DF, QD
     Route: 048
  5. NOVOMIX                            /01475801/ [Concomitant]
  6. GLIMEPIRIDE [Concomitant]
     Dosage: 4 MG, QD
     Route: 048
     Dates: end: 20101026
  7. BYETTA [Suspect]
     Dosage: 5 UG, BID
     Route: 058
     Dates: start: 20101028, end: 20101106
  8. CRESTOR [Concomitant]
     Dosage: 10 MG, QD
     Route: 048

REACTIONS (5)
  - OFF LABEL USE [None]
  - GASTRITIS [None]
  - PANCREATITIS ACUTE [None]
  - PYREXIA [None]
  - HEPATIC STEATOSIS [None]
